FAERS Safety Report 5258349-9 (Version None)
Quarter: 2007Q1

REPORT INFORMATION
  Report Type: 
  Country: None (occurrence: None)
  Receive Date: 20070306
  Receipt Date: 20070306
  Transmission Date: 20070707
  Serious: Yes (Hospitalization)
  Sender: FDA-Public Use
  Company Number: None

PATIENT
  Age: 56 Year
  Sex: Male
  Weight: 86.4 kg

DRUGS (15)
  1. CLOZAPINE [Suspect]
     Indication: ANTISOCIAL PERSONALITY DISORDER
     Dosage: 200MG PO QAM 275 MG PO QHS
     Route: 048
     Dates: start: 20010101
  2. CLOZAPINE [Suspect]
     Indication: SCHIZOPHRENIA, UNDIFFERENTIATED TYPE
     Dosage: 200MG PO QAM 275 MG PO QHS
     Route: 048
     Dates: start: 20010101
  3. INDERAL [Concomitant]
  4. ZOLOFT [Concomitant]
  5. SYMMETRAL [Concomitant]
  6. LIPITOR [Concomitant]
  7. DULCOLAX [Concomitant]
  8. COLACE [Concomitant]
  9. LACTULOSE [Concomitant]
  10. SYNTHROID [Concomitant]
  11. ATIVAN [Concomitant]
  12. ZYPREXA [Concomitant]
  13. PRILOSEC [Concomitant]
  14. MIRALAX [Concomitant]
  15. VITAMIN CAP [Concomitant]

REACTIONS (2)
  - ILEUS [None]
  - SMALL INTESTINAL OBSTRUCTION [None]
